FAERS Safety Report 5626765-9 (Version None)
Quarter: 2008Q1

REPORT INFORMATION
  Report Type: 
  Country: None (occurrence: None)
  Receive Date: 20080214
  Receipt Date: 20080202
  Transmission Date: 20080703
  Serious: Yes (Other)
  Sender: FDA-Public Use
  Company Number: US-PFIZER INC-2008010932

PATIENT
  Sex: Female
  Weight: 65.8 kg

DRUGS (3)
  1. DILANTIN [Suspect]
     Indication: CONVULSION
  2. DILANTIN [Suspect]
  3. PHENOBARBITONE [Concomitant]
     Indication: CONVULSION

REACTIONS (6)
  - ANTICONVULSANT DRUG LEVEL DECREASED [None]
  - CONCUSSION [None]
  - CONVULSION [None]
  - DYSSTASIA [None]
  - FALL [None]
  - HEAD INJURY [None]
